FAERS Safety Report 6745815-X (Version None)
Quarter: 2010Q2

REPORT INFORMATION
  Report Type: 
  Country: None (occurrence: None)
  Receive Date: 20100528
  Receipt Date: 20100519
  Transmission Date: 20101027
  Serious: Yes (Other)
  Sender: FDA-Public Use
  Company Number: US-ABBOTT-10P-163-0646156-00

PATIENT
  Age: 59 Year
  Sex: Female
  Weight: 62.652 kg

DRUGS (15)
  1. SYNTHROID [Suspect]
     Indication: HYPERTHYROIDISM
     Dates: start: 20010101
  2. SYNTHROID [Suspect]
  3. CHANTIX [Suspect]
     Indication: EX-TOBACCO USER
     Route: 048
     Dates: start: 20070101
  4. CHANTIX [Suspect]
     Dates: start: 20100428
  5. IBANDRONATE SODIUM [Concomitant]
     Indication: OSTEOARTHRITIS
  6. CELEBREX [Concomitant]
     Indication: ARTHRITIS
  7. METHOTREXATE [Concomitant]
     Indication: ARTHRITIS
     Dates: start: 20010101
  8. MONTELUKAST SODIUM [Concomitant]
     Indication: HYPERSENSITIVITY
     Dates: start: 20010101
  9. FOLIC ACID [Concomitant]
     Indication: DRUG USE FOR UNKNOWN INDICATION
     Dates: start: 20010101
  10. FOSINOPRIL SODIUM [Concomitant]
     Indication: BLOOD PRESSURE ABNORMAL
  11. OMEPRAZOLE [Concomitant]
     Indication: GASTROOESOPHAGEAL REFLUX DISEASE
  12. CARVEDILOL [Concomitant]
     Indication: CARDIAC DISORDER
     Dates: start: 20070101
  13. COLECALCIFEROL [Concomitant]
     Indication: VITAMIN SUPPLEMENTATION
     Dosage: MAXIMUM TAKEN 3
  14. PLAVIX [Concomitant]
     Indication: CARDIAC DISORDER
     Dates: start: 20070101
  15. CARBAMAZEPINE [Concomitant]
     Indication: POST-TRAUMATIC EPILEPSY
     Dates: start: 19810101

REACTIONS (1)
  - WEIGHT INCREASED [None]
